FAERS Safety Report 8522797-1 (Version None)
Quarter: 2012Q3

REPORT INFORMATION
  Report Type: 
  Country: None (occurrence: None)
  Receive Date: 20120719
  Receipt Date: 20120705
  Transmission Date: 20120928
  Serious: Yes (Other)
  Sender: FDA-Public Use
  Company Number: CHPA2012US015100

PATIENT
  Age: 69 Year
  Sex: Female

DRUGS (4)
  1. EXCEDRIN TENSION HEADACHE CAPLETS [Suspect]
     Indication: HEADACHE
     Dosage: 1 TO 2 DF, QD
     Route: 048
  2. BENEFIBER W/ WHEAT DEXTRIN [Suspect]
     Indication: FAECES HARD
     Dosage: 3 TSP, QD
     Route: 048
  3. MAGNESIUM SULFATE [Concomitant]
     Dosage: 250 MG, 3 TIMES A WEEK
  4. EXCEDRIN EXTRA STRENGTH TABLETS [Suspect]
     Dosage: 1 TO 2 DF, QD
     Route: 048

REACTIONS (1)
  - OSTEOPENIA [None]
